FAERS Safety Report 15742166 (Version 1)
Quarter: 2018Q4

REPORT INFORMATION
  Report Type: Spontaneous
  Country: US (occurrence: US)
  Receive Date: 20181219
  Receipt Date: 20181219
  Transmission Date: 20190205
  Serious: Yes (Other)
  Sender: FDA-Public Use
  Company Number: US-PFIZER INC-2018518753

PATIENT
  Sex: Male

DRUGS (4)
  1. ELIQUIS [Suspect]
     Active Substance: APIXABAN
     Indication: CARDIAC FAILURE CONGESTIVE
     Dosage: UNK
  2. LISINOPRIL. [Suspect]
     Active Substance: LISINOPRIL
     Indication: CARDIAC FAILURE CONGESTIVE
     Dosage: UNK
  3. HYDROCHLOROTH [Suspect]
     Active Substance: HYDROCHLOROTHIAZIDE
     Indication: CARDIAC FAILURE CONGESTIVE
     Dosage: UNK
  4. SPIRONOLACTONE. [Suspect]
     Active Substance: SPIRONOLACTONE
     Indication: CARDIAC FAILURE CONGESTIVE
     Dosage: UNK

REACTIONS (17)
  - Disturbance in attention [Unknown]
  - Intentional product use issue [Unknown]
  - Fluid retention [Unknown]
  - Weight increased [Unknown]
  - Wrong technique in product usage process [Unknown]
  - Product dose omission [Unknown]
  - Exercise tolerance decreased [Unknown]
  - Depressed level of consciousness [Unknown]
  - Asthenia [Unknown]
  - Heart rate irregular [Unknown]
  - Waist circumference increased [Unknown]
  - Wheezing [Unknown]
  - Fatigue [Unknown]
  - Abdominal distension [Unknown]
  - Dizziness [Unknown]
  - Dyspnoea [Unknown]
  - Cough [Unknown]
